FAERS Safety Report 7644906-9 (Version None)
Quarter: 2011Q3

REPORT INFORMATION
  Report Type: 
  Country: None (occurrence: None)
  Receive Date: 20110729
  Receipt Date: 20110726
  Transmission Date: 20111222
  Serious: Yes (Hospitalization)
  Sender: FDA-Public Use
  Company Number: US-SANOFI-AVENTIS-2011SA047851

PATIENT
  Age: 82 Year
  Sex: Female

DRUGS (1)
  1. PLAVIX [Suspect]
     Dosage: MISTAKENLY TOOK ANOTHER CLOPIDOGREL ON 26-JUL-2011
     Route: 048
     Dates: start: 20060101

REACTIONS (2)
  - BLADDER DISORDER [None]
  - ACCIDENTAL OVERDOSE [None]
